FAERS Safety Report 9053325 (Version 1)
Quarter: 2013Q1

REPORT INFORMATION
  Report Type: Spontaneous
  Country: TW (occurrence: TW)
  Receive Date: 20130207
  Receipt Date: 20130207
  Transmission Date: 20140127
  Serious: Yes (Hospitalization, Other)
  Sender: FDA-Public Use
  Company Number: PHHY2013TW010152

PATIENT
  Age: 77 Year
  Sex: Male

DRUGS (13)
  1. PREDNISOLONE [Suspect]
     Dosage: 10 MG IN THE MORNING, 5 MG IN THE EVENING
  2. PREDNISOLONE [Suspect]
     Dosage: 2.5 MG IN THE MORNING AND 2.5 MG AT NIGHT
  3. PREDNISOLONE [Suspect]
     Dosage: 2.5 MG, UNK
  4. CORTISONE [Suspect]
     Dosage: 25 MG IN THE MORNING, 12.5 MG IN THE EVENING
  5. CORTISONE [Suspect]
     Dosage: 50 MG IN THE MORNING, CORTISONE 25 MG
  6. CORTISONE [Suspect]
     Dosage: 50 MG IN THE MORNING AND 25 MG IN THE EVENING
  7. CORTISONE [Suspect]
     Dosage: 25 MG IN THE MORNING, 12.5 MG IN THE EVENING
  8. THYROXINE [Concomitant]
     Dosage: 50 MG, UNK
  9. THYROXINE [Concomitant]
     Dosage: 100 MG, UNK
  10. THYROXINE [Concomitant]
     Dosage: 100 MG, UNK
  11. THYROXINE [Concomitant]
     Dosage: 100 MG, UNK
  12. THYROXINE [Concomitant]
     Dosage: 100 MG, UNK
  13. SALINE [Concomitant]

REACTIONS (20)
  - Substance-induced psychotic disorder [Recovered/Resolved]
  - Speech disorder [Recovered/Resolved]
  - Abnormal behaviour [Recovered/Resolved]
  - Blood pressure increased [Recovered/Resolved]
  - Delirium [Recovered/Resolved]
  - Insomnia [Recovered/Resolved]
  - Psychomotor hyperactivity [Recovered/Resolved]
  - Lethargy [Recovered/Resolved]
  - Hallucination [Recovered/Resolved]
  - Aggression [Recovered/Resolved]
  - Intentional self-injury [Recovered/Resolved]
  - Disorientation [Recovered/Resolved]
  - Agitation [Recovered/Resolved]
  - Acute psychosis [Recovered/Resolved]
  - Autoimmune thyroiditis [Recovered/Resolved]
  - Hypothyroidism [Recovered/Resolved]
  - Encephalopathy [Recovered/Resolved]
  - Diarrhoea [Recovered/Resolved]
  - Adrenocortical insufficiency acute [Recovered/Resolved]
  - Hyponatraemia [Recovered/Resolved]
